FAERS Safety Report 10149324 (Version 1)
Quarter: 2014Q2

REPORT INFORMATION
  Report Type: Spontaneous
  Country: US (occurrence: None)
  Receive Date: 20140430
  Receipt Date: 20140430
  Transmission Date: 20141212
  Serious: Yes (Other)
  Sender: FDA-Public Use
  Company Number: AUR-APL-2014-05131

PATIENT
  Age: 52 Year
  Sex: Female

DRUGS (10)
  1. TRAMADOL (TRAMADOL) [Suspect]
     Indication: PAIN
     Dates: start: 201311
  2. OXYCODONE (OXYCODONE) [Suspect]
     Indication: PAIN
     Dates: start: 201311
  3. PREDNISONE (PREDNISONE) [Suspect]
     Indication: PAIN
     Dates: end: 20140131
  4. LYRICA (PREGABALIN) [Suspect]
     Indication: PAIN
     Route: 048
     Dates: start: 201402
  5. HYDROCODONE (HYDROCODONE) [Suspect]
     Indication: PAIN
     Dates: start: 201311
  6. TYLENOL (PARACETAMOL) [Suspect]
     Indication: PAIN
     Dates: start: 201311
  7. NEXIUM (ESOMEPRAZOLE MADNESIUM) [Concomitant]
  8. LISINOPRIL (LISINOPRIL) [Concomitant]
  9. APRISO (MESALAZINE) [Concomitant]
  10. AMLODIPINE (AMLODIPINE) [Concomitant]

REACTIONS (17)
  - Localised infection [None]
  - Gastric disorder [None]
  - Arthralgia [None]
  - Swelling [None]
  - Pain [None]
  - Gastrointestinal disorder [None]
  - Vomiting [None]
  - Osteomyelitis [None]
  - Memory impairment [None]
  - Weight increased [None]
  - Skin disorder [None]
  - Peripheral swelling [None]
  - Rash pruritic [None]
  - Insomnia [None]
  - Hypokinesia [None]
  - Drug ineffective [None]
  - Feeling abnormal [None]
